FAERS Safety Report 6736318-7 (Version None)
Quarter: 2010Q2

REPORT INFORMATION
  Report Type: 
  Country: None (occurrence: None)
  Receive Date: 20100521
  Receipt Date: 20100512
  Transmission Date: 20101027
  Serious: Yes (Hospitalization, Other)
  Sender: FDA-Public Use
  Company Number: BR-ABBOTT-09P-020-0603541-00

PATIENT
  Sex: Female
  Weight: 74 kg

DRUGS (5)
  1. HUMIRA [Suspect]
     Indication: RHEUMATOID ARTHRITIS
     Route: 058
     Dates: start: 20080101, end: 20091201
  2. ATENOLOL [Concomitant]
     Indication: HYPERTENSION
     Route: 048
     Dates: start: 20041201
  3. OMEPRAZOLE [Concomitant]
     Indication: GASTRITIS
     Route: 048
     Dates: start: 20040101
  4. ISOFLAVONE [Concomitant]
     Indication: MENOPAUSE
     Route: 048
     Dates: start: 20040101
  5. DICLOFENAC [Concomitant]
     Indication: PAIN
     Route: 048

REACTIONS (12)
  - DRUG INEFFECTIVE [None]
  - FALL [None]
  - JOINT RANGE OF MOTION DECREASED [None]
  - LIGAMENT RUPTURE [None]
  - LOCALISED INFECTION [None]
  - MUSCLE ATROPHY [None]
  - MUSCLE SPASMS [None]
  - NAUSEA [None]
  - PAIN [None]
  - PIGMENTATION DISORDER [None]
  - SWELLING [None]
  - VOMITING [None]
